FAERS Safety Report 7283909-3 (Version None)
Quarter: 2011Q1

REPORT INFORMATION
  Report Type: 
  Country: None (occurrence: None)
  Receive Date: 20110209
  Receipt Date: 20110128
  Transmission Date: 20110831
  Serious: Yes (Other)
  Sender: FDA-Public Use
  Company Number: PHHY2011AR07045

PATIENT
  Sex: Male

DRUGS (4)
  1. LINEZOLID [Suspect]
     Indication: TUBERCULOSIS
  2. MOXIFLOXACIN [Suspect]
     Indication: TUBERCULOSIS
  3. ETHIONAMIDE [Suspect]
     Indication: TUBERCULOSIS
  4. THIORIDAZINE HCL [Suspect]
     Indication: TUBERCULOSIS

REACTIONS (1)
  - NEUROPATHY PERIPHERAL [None]
